FAERS Safety Report 21897149 (Version 1)
Quarter: 2023Q1

REPORT INFORMATION
  Report Type: Spontaneous
  Country: PL (occurrence: PL)
  Receive Date: 20230123
  Receipt Date: 20230123
  Transmission Date: 20230418
  Serious: Yes (Other)
  Sender: FDA-Public Use
  Company Number: PL-TEVA-2023-PL-2847329

PATIENT
  Age: 51 Year
  Sex: Male
  Weight: 86 kg

DRUGS (1)
  1. COPAXONE [Suspect]
     Active Substance: GLATIRAMER ACETATE
     Indication: Multiple sclerosis
     Dosage: 1.9048 MILLIGRAM/MILLILITERS DAILY;
     Route: 058
     Dates: start: 20120910

REACTIONS (3)
  - Epidermal necrosis [Recovering/Resolving]
  - Injection site inflammation [Recovering/Resolving]
  - Injection site scab [Recovering/Resolving]

NARRATIVE: CASE EVENT DATE: 20221125
